FAERS Safety Report 16799443 (Version 2)
Quarter: 2019Q3

REPORT INFORMATION
  Report Type: Spontaneous
  Country: JP (occurrence: JP)
  Receive Date: 20190912
  Receipt Date: 20190926
  Transmission Date: 20191005
  Serious: Yes (Death)
  Sender: FDA-Public Use
  Company Number: PHHY2019JP212053

PATIENT
  Age: 77 Year
  Sex: Female
  Weight: 45 kg

DRUGS (12)
  1. TEGAFUR [Suspect]
     Active Substance: TEGAFUR
     Indication: GASTRIC CANCER
     Route: 065
  2. GIMERACIL [Suspect]
     Active Substance: GIMERACIL
     Indication: METASTASES TO BONE
  3. OTERACIL [Suspect]
     Active Substance: OTERACIL
     Indication: METASTASES TO BONE
  4. DOCETAXEL. [Suspect]
     Active Substance: DOCETAXEL
     Indication: METASTASES TO BONE MARROW
  5. GIMERACIL [Suspect]
     Active Substance: GIMERACIL
     Indication: GASTRIC CANCER
     Route: 065
  6. GIMERACIL [Suspect]
     Active Substance: GIMERACIL
     Indication: METASTASES TO BONE MARROW
  7. DOCETAXEL. [Suspect]
     Active Substance: DOCETAXEL
     Indication: GASTRIC CANCER
     Dosage: UNK
     Route: 065
  8. DOCETAXEL. [Suspect]
     Active Substance: DOCETAXEL
     Indication: METASTASES TO BONE
  9. OTERACIL [Suspect]
     Active Substance: OTERACIL
     Indication: GASTRIC CANCER
     Route: 065
  10. TEGAFUR [Suspect]
     Active Substance: TEGAFUR
     Indication: METASTASES TO BONE MARROW
  11. OTERACIL [Suspect]
     Active Substance: OTERACIL
     Indication: METASTASES TO BONE MARROW
  12. TEGAFUR [Suspect]
     Active Substance: TEGAFUR
     Indication: METASTASES TO BONE

REACTIONS (2)
  - Sepsis [Fatal]
  - Haematotoxicity [Fatal]
